FAERS Safety Report 4892331-6 (Version None)
Quarter: 2006Q1

REPORT INFORMATION
  Report Type: 
  Country: None (occurrence: None)
  Receive Date: 20060126
  Receipt Date: 20060119
  Transmission Date: 20060701
  Serious: Yes (Other)
  Sender: FDA-Public Use
  Company Number: US-GLAXOSMITHKLINE-A0590066A

PATIENT
  Age: 72 Year
  Sex: Female

DRUGS (11)
  1. AVANDIA [Suspect]
     Indication: DIABETES MELLITUS NON-INSULIN-DEPENDENT
     Dosage: 8MG PER DAY
     Route: 048
     Dates: start: 20050301, end: 20060101
  2. METFORMIN HCL [Concomitant]
  3. TOPROL [Concomitant]
  4. NORVASC [Concomitant]
  5. DIOVAN [Concomitant]
  6. PLAVIX [Concomitant]
  7. ASPIRIN [Concomitant]
  8. FOLIC ACID [Concomitant]
  9. KLOR-CON [Concomitant]
  10. FUROSEMIDE [Concomitant]
  11. CALCIUM GLUCONATE [Concomitant]

REACTIONS (10)
  - ANAEMIA [None]
  - BACK PAIN [None]
  - CHEST PAIN [None]
  - CHOKING SENSATION [None]
  - DYSPNOEA [None]
  - NEUTROPHIL COUNT DECREASED [None]
  - PALPITATIONS [None]
  - RED CELL DISTRIBUTION WIDTH INCREASED [None]
  - SHOULDER PAIN [None]
  - YELLOW SKIN [None]
